FAERS Safety Report 19958739 (Version 2)
Quarter: 2021Q4

REPORT INFORMATION
  Report Type: Spontaneous
  Country: IT (occurrence: IT)
  Receive Date: 20211015
  Receipt Date: 20211028
  Transmission Date: 20220303
  Serious: Yes (Death)
  Sender: FDA-Public Use
  Company Number: None

PATIENT
  Age: 68 Year
  Sex: Female
  Weight: 48 kg

DRUGS (5)
  1. CARBOPLATIN [Suspect]
     Active Substance: CARBOPLATIN
     Indication: Bladder cancer
     Dosage: 200 MG
     Route: 042
     Dates: start: 20210719, end: 20210830
  2. GEMCITABINE [Suspect]
     Active Substance: GEMCITABINE
     Indication: Bladder cancer
     Dosage: 1000 MG
     Route: 042
     Dates: start: 20210719, end: 20210830
  3. SODIUM CHLORIDE [Concomitant]
     Active Substance: SODIUM CHLORIDE
     Indication: Bladder cancer
     Dosage: 100 ML
     Route: 042
     Dates: start: 20210719, end: 20210830
  4. PALONOSETRON HYDROCHLORIDE [Concomitant]
     Active Substance: PALONOSETRON HYDROCHLORIDE
     Indication: Bladder cancer
     Dosage: 250 MCG
     Route: 040
     Dates: start: 20210719, end: 20210830
  5. DEXAMETHASONE SODIUM PHOSPHATE [Concomitant]
     Active Substance: DEXAMETHASONE SODIUM PHOSPHATE
     Indication: Bladder cancer
     Dosage: 8 MG
     Route: 042
     Dates: start: 20210719, end: 20210830

REACTIONS (1)
  - Pancytopenia [Fatal]

NARRATIVE: CASE EVENT DATE: 20210903
